FAERS Safety Report 5855650-2 (Version None)
Quarter: 2008Q3

REPORT INFORMATION
  Report Type: 
  Country: None (occurrence: None)
  Receive Date: 20080823
  Receipt Date: 20080812
  Transmission Date: 20090109
  Serious: Yes (Hospitalization)
  Sender: FDA-Public Use
  Company Number: GB-ELI_LILLY_AND_COMPANY-GB200807001889

PATIENT
  Sex: Female
  Weight: 79 kg

DRUGS (16)
  1. HUMALOG [Suspect]
     Indication: TYPE 2 DIABETES MELLITUS
     Dosage: 28 U, EACH MORNING
     Route: 058
  2. HUMALOG [Suspect]
     Dosage: 10 U, EACH EVENING
     Route: 058
  3. HUMALOG [Suspect]
     Dosage: 20 U, EACH MORNING
     Route: 065
     Dates: start: 20080627
  4. HUMALOG [Suspect]
     Dosage: 10 U, EACH EVENING
     Route: 065
     Dates: start: 20080627
  5. HUMALOG [Suspect]
     Dosage: 28 U, UNKNOWN
     Route: 058
  6. HUMALOG [Suspect]
     Dosage: 10 U, UNKNOWN
     Route: 058
  7. CLOPIDOGREL [Concomitant]
     Dosage: 75 MG, UNKNOWN
     Route: 048
  8. FRUSEMIDE [Concomitant]
     Dosage: 40 MG, UNKNOWN
     Route: 048
  9. ISOTARD XL [Concomitant]
     Dosage: 60 MG, UNKNOWN
     Route: 048
  10. LISINOPRIL [Concomitant]
     Dosage: 5 MG, UNKNOWN
     Route: 048
  11. SIMVASTATIN [Concomitant]
     Dosage: 40 MG, UNKNOWN
     Route: 048
  12. ALLOPURINOL [Concomitant]
     Dosage: 300 MG, UNKNOWN
     Route: 048
  13. OMEPRAZOLE [Concomitant]
     Dosage: 20 MG, UNKNOWN
     Route: 048
  14. BISOPROLOL FUMARATE [Concomitant]
     Dosage: 2.5 MG, UNKNOWN
     Route: 048
  15. NICORANDIL [Concomitant]
     Dosage: 10 MG, UNKNOWN
     Route: 048
  16. CLARITHROMYCIN [Concomitant]
     Dosage: 500 MG, UNKNOWN
     Route: 048
     Dates: start: 20080627, end: 20080630

REACTIONS (3)
  - ANGINA PECTORIS [None]
  - HYPOGLYCAEMIA [None]
  - INCORRECT DOSE ADMINISTERED [None]
